FAERS Safety Report 21804208 (Version 2)
Quarter: 2023Q1

REPORT INFORMATION
  Report Type: Report from Study
  Country: US (occurrence: US)
  Receive Date: 20230102
  Receipt Date: 20230213
  Transmission Date: 20230417
  Serious: Yes (Other)
  Sender: FDA-Public Use
  Company Number: US-ABBVIE-4213442

PATIENT
  Age: 67 Year
  Sex: Male

DRUGS (1)
  1. HUMIRA [Suspect]
     Active Substance: ADALIMUMAB
     Indication: Crohn^s disease
     Dosage: CF
     Route: 058
     Dates: start: 20191105

REACTIONS (3)
  - Gastric stenosis [Recovering/Resolving]
  - Bicuspid aortic valve [Not Recovered/Not Resolved]
  - Cardiac murmur [Unknown]

NARRATIVE: CASE EVENT DATE: 20230109
